FAERS Safety Report 10189874 (Version 1)
Quarter: 2014Q2

REPORT INFORMATION
  Report Type: Spontaneous
  Country: US (occurrence: US)
  Receive Date: 20140522
  Receipt Date: 20140522
  Transmission Date: 20141212
  Serious: Yes (Other)
  Sender: FDA-Public Use
  Company Number: US-SA-2014SA003074

PATIENT
  Age: 72 Year
  Sex: Female
  Weight: 81.64 kg

DRUGS (17)
  1. LANTUS SOLOSTAR [Suspect]
     Indication: TYPE 2 DIABETES MELLITUS
     Dosage: DOSE:40 UNIT(S)
     Route: 058
     Dates: start: 20130829
  2. SOLOSTAR [Concomitant]
     Indication: TYPE 2 DIABETES MELLITUS
     Dates: start: 20130829
  3. FIORICET [Concomitant]
     Route: 065
  4. TRAMADOL [Concomitant]
     Indication: MIGRAINE
     Route: 065
  5. FLUTICASONE PROPIONATE [Concomitant]
     Dosage: DOSE:2 PUFF(S)
     Route: 065
  6. ADVAIR DISKUS [Concomitant]
     Indication: ASTHMA
     Dosage: 250/50 MG TWICE A DAY
     Route: 065
     Dates: start: 19990101, end: 20140101
  7. METFORMIN HYDROCHLORIDE [Concomitant]
     Indication: DIABETIC NEUROPATHY
     Dosage: 1 TAB AM+PM
     Route: 065
     Dates: start: 19880101, end: 20131203
  8. DIGOXIN [Concomitant]
     Route: 065
  9. LASIX [Concomitant]
     Indication: FLUID RETENTION
     Route: 065
     Dates: start: 20130105, end: 20131112
  10. LOVASTATIN [Concomitant]
     Indication: BLOOD CHOLESTEROL
     Route: 065
     Dates: start: 19850101, end: 20131209
  11. SYNTHROID [Concomitant]
     Indication: HYPOTHYROIDISM
     Route: 065
     Dates: start: 19950101, end: 20131101
  12. POTASSIUM GLUCONATE [Concomitant]
     Dosage: DOSE:595
     Route: 065
  13. CYMBALTA [Concomitant]
     Indication: DEPRESSION
     Dosage: DOSE 30 IN MORNING 60 IN EVENING
     Route: 065
     Dates: start: 20100207, end: 20140207
  14. TOPRAL [Concomitant]
     Route: 065
  15. ALL OTHER THERAPEUTIC PRODUCTS [Concomitant]
     Route: 065
  16. ALBUTEROL [Concomitant]
  17. LYRICA [Concomitant]
     Indication: DIABETIC NEUROPATHY
     Dates: start: 20130105, end: 20131231

REACTIONS (3)
  - Bronchitis [Not Recovered/Not Resolved]
  - Asthma [Not Recovered/Not Resolved]
  - Malaise [Not Recovered/Not Resolved]
